FAERS Safety Report 22601164 (Version 1)
Quarter: 2023Q2

REPORT INFORMATION
  Report Type: Report from Study
  Country: US (occurrence: US)
  Receive Date: 20230614
  Receipt Date: 20230614
  Transmission Date: 20230721
  Serious: Yes (Other)
  Sender: FDA-Public Use
  Company Number: US-ABBVIE-5284130

PATIENT
  Sex: Male

DRUGS (2)
  1. VENCLEXTA [Suspect]
     Active Substance: VENETOCLAX
     Indication: Chronic lymphocytic leukaemia
     Route: 048
  2. VENCLEXTA [Suspect]
     Active Substance: VENETOCLAX
     Indication: Chronic lymphocytic leukaemia
     Route: 048
     Dates: start: 202106, end: 2022

REACTIONS (7)
  - Heart valve replacement [Unknown]
  - Blood uric acid increased [Unknown]
  - Lymphocyte count increased [Unknown]
  - Aortic surgery [Unknown]
  - Lymphadenopathy [Unknown]
  - Stress [Recovering/Resolving]
  - Heart rate irregular [Unknown]
